FAERS Safety Report 7242089-0 (Version None)
Quarter: 2011Q1

REPORT INFORMATION
  Report Type: 
  Country: None (occurrence: None)
  Receive Date: 20110124
  Receipt Date: 20110119
  Transmission Date: 20110831
  Serious: Yes (Other)
  Sender: FDA-Public Use
  Company Number: IR-PFIZER INC-2011010994

PATIENT
  Age: 48 Year
  Sex: Male

DRUGS (5)
  1. RANITIDINE [Concomitant]
  2. ENOXAPARIN SODIUM [Concomitant]
  3. CEFAZOLIN [Concomitant]
  4. METHYLPREDNISOLONE SODIUM SUCCINATE [Suspect]
     Indication: FAT EMBOLISM
     Dosage: 500 MG, EVERY 6 H
     Route: 042
  5. GENTAMICIN [Concomitant]

REACTIONS (2)
  - SINUS TACHYCARDIA [None]
  - ATRIAL FIBRILLATION [None]
